FAERS Safety Report 7027798-0 (Version None)
Quarter: 2010Q4

REPORT INFORMATION
  Report Type: 
  Country: None (occurrence: None)
  Receive Date: 20101005
  Receipt Date: 20100914
  Transmission Date: 20110411
  Serious: Yes (Other)
  Sender: FDA-Public Use
  Company Number: US-BAYER-201022503NA

PATIENT
  Age: 22 Year
  Sex: Female
  Weight: 51 kg

DRUGS (12)
  1. YAZ [Suspect]
     Indication: CONTRACEPTION
     Dates: start: 20030101, end: 20090101
  2. YASMIN [Suspect]
     Indication: CONTRACEPTION
     Dates: start: 20030101, end: 20090101
  3. MINOCYCLINE HCL [Concomitant]
  4. NSAID'S [Concomitant]
     Dates: start: 20070101
  5. COLESTIPOL HYDROCHLORIDE [Concomitant]
     Route: 048
  6. PROMETHAZINE [Concomitant]
     Dates: start: 20071230
  7. HYDROCODONE [Concomitant]
  8. PREDNISOLONE [Concomitant]
  9. ALLEGRA D 24 HOUR [Concomitant]
  10. AZITHROMYCIN [Concomitant]
  11. EPIPEN [Concomitant]
  12. COLESTID [Concomitant]

REACTIONS (8)
  - ABDOMINAL PAIN UPPER [None]
  - ANXIETY [None]
  - BILIARY DYSKINESIA [None]
  - CHOLECYSTITIS CHRONIC [None]
  - CHOLELITHIASIS [None]
  - GALLBLADDER CHOLESTEROLOSIS [None]
  - NAUSEA [None]
  - PAIN [None]
